FAERS Safety Report 9885687 (Version 1)
Quarter: 2014Q1

REPORT INFORMATION
  Report Type: Spontaneous
  Country: BR (occurrence: BR)
  Receive Date: 20140210
  Receipt Date: 20140210
  Transmission Date: 20141002
  Serious: Yes (Hospitalization, Other)
  Sender: FDA-Public Use
  Company Number: BR-PFIZER INC-2014033897

PATIENT
  Age: 42 Year
  Sex: Female
  Weight: 60 kg

DRUGS (2)
  1. LYRICA [Suspect]
     Indication: PAIN
     Dosage: 75 MG, 1X/DAY
     Dates: start: 2012
  2. LYRICA [Suspect]
     Dosage: 150 MG, 1X/DAY

REACTIONS (4)
  - Pneumonia [Unknown]
  - Pleural effusion [Unknown]
  - Tendonitis [Unknown]
  - Pain [Unknown]
